FAERS Safety Report 9003885 (Version 1)
Quarter: 2013Q1

REPORT INFORMATION
  Report Type: Spontaneous
  Country: US (occurrence: US)
  Receive Date: 20130108
  Receipt Date: 20130108
  Transmission Date: 20140127
  Serious: No
  Sender: FDA-Public Use
  Company Number: US-ASTRAZENECA-2012SE94425

PATIENT
  Age: 36 Year
  Sex: Female
  Weight: 58.5 kg

DRUGS (5)
  1. SEROQUEL [Suspect]
     Indication: SLEEP DISORDER
     Route: 048
     Dates: start: 2010, end: 201207
  2. SEROQUEL [Suspect]
     Indication: DEPRESSION
     Route: 048
     Dates: start: 2010, end: 201207
  3. SEROQUEL [Suspect]
     Indication: SLEEP DISORDER
     Dosage: GENERIC
     Route: 048
     Dates: start: 201207
  4. SEROQUEL [Suspect]
     Indication: DEPRESSION
     Dosage: GENERIC
     Route: 048
     Dates: start: 201207
  5. LEXAPRO [Concomitant]
     Indication: DEPRESSION
     Route: 048

REACTIONS (7)
  - Heart rate irregular [Unknown]
  - Insomnia [Unknown]
  - Depressed mood [Unknown]
  - Drug ineffective [Unknown]
  - Night sweats [Unknown]
  - Orthostatic hypotension [Unknown]
  - Weight increased [Unknown]
